FAERS Safety Report 7251057-4 (Version None)
Quarter: 2011Q1

REPORT INFORMATION
  Report Type: 
  Country: None (occurrence: None)
  Receive Date: 20110128
  Receipt Date: 20100722
  Transmission Date: 20110831
  Serious: Yes (Hospitalization)
  Sender: FDA-Public Use
  Company Number: US-BAYER-200942166NA

PATIENT
  Sex: Female
  Weight: 48 kg

DRUGS (14)
  1. PREVACID [Concomitant]
     Route: 048
     Dates: start: 20071201, end: 20071215
  2. DILAUDID [Concomitant]
     Indication: PAIN
     Dosage: AS NEEDED FOR PAIN
     Route: 042
     Dates: start: 20071201, end: 20071215
  3. REGLAN [Concomitant]
     Indication: NAUSEA
     Dosage: AS NEEDED FOR NAUSEA
     Route: 040
     Dates: start: 20071201
  4. DILAUDID [Concomitant]
     Dosage: AS NEEDED FOR PAIN
     Route: 048
     Dates: start: 20071201
  5. AMBIEN [Concomitant]
     Indication: INSOMNIA
     Dosage: AS NEEDED FOR INSOMNIA
     Dates: start: 20071201, end: 20071215
  6. BENTYL [Concomitant]
     Indication: IRRITABLE BOWEL SYNDROME
  7. YASMIN [Suspect]
     Route: 048
  8. NORTREL [ETHINYLESTRADIOL,NORETHISTERONE] [Concomitant]
     Dates: start: 20070710
  9. MELATONIN [Concomitant]
  10. DILAUDID [Concomitant]
     Dosage: AS NEEDED FOR PAIN
     Route: 048
     Dates: start: 20071201
  11. INDERAL [Concomitant]
     Indication: PALPITATIONS
     Dosage: AS NEEDED FOR PALPITATIONS
  12. PROPRANOLOL [Concomitant]
  13. ACETAMINOPHEN [Concomitant]
     Route: 048
     Dates: start: 20071201, end: 20071215
  14. YAZ [Suspect]
     Route: 050

REACTIONS (10)
  - COUGH [None]
  - PLEURITIC PAIN [None]
  - PLEURAL EFFUSION [None]
  - PULMONARY EMBOLISM [None]
  - DYSPNOEA [None]
  - DEEP VEIN THROMBOSIS [None]
  - PAIN IN EXTREMITY [None]
  - OEDEMA PERIPHERAL [None]
  - BACK PAIN [None]
  - PLEURISY [None]
